FAERS Safety Report 11921607 (Version 1)
Quarter: 2016Q1

REPORT INFORMATION
  Report Type: Spontaneous
  Country: US (occurrence: US)
  Receive Date: 20160115
  Receipt Date: 20160115
  Transmission Date: 20160526
  Serious: No
  Sender: FDA-Public Use
  Company Number: US-NOVOPROD-469020

PATIENT
  Age: 38 Year
  Sex: Female

DRUGS (2)
  1. SAXENDA [Suspect]
     Active Substance: LIRAGLUTIDE
     Indication: WEIGHT DECREASED
     Dosage: 1.8 MG
     Route: 058
     Dates: start: 201509
  2. SAXENDA [Suspect]
     Active Substance: LIRAGLUTIDE
     Dosage: 1.2 MG, QD
     Route: 058
     Dates: start: 2015

REACTIONS (3)
  - Injection site pruritus [Recovered/Resolved]
  - Injection site urticaria [Recovered/Resolved]
  - Injection site rash [Recovered/Resolved]

NARRATIVE: CASE EVENT DATE: 2015
